FAERS Safety Report 22318210 (Version 2)
Quarter: 2023Q2

REPORT INFORMATION
  Report Type: Report from Study
  Country: US (occurrence: US)
  Receive Date: 20230515
  Receipt Date: 20230516
  Transmission Date: 20230721
  Serious: No
  Sender: FDA-Public Use
  Company Number: US-002147023-NVSC2023US110223

PATIENT
  Age: 26 Year
  Sex: Female

DRUGS (3)
  1. COSENTYX [Suspect]
     Active Substance: SECUKINUMAB
     Indication: Psoriasis
     Dosage: 300 MG, QW
     Route: 058
     Dates: start: 20230411, end: 20230503
  2. COSENTYX [Suspect]
     Active Substance: SECUKINUMAB
     Dosage: 300 MG, QW
     Route: 058
     Dates: start: 20230424
  3. COSENTYX [Suspect]
     Active Substance: SECUKINUMAB
     Dosage: 1 DOSAGE FORM, QW (150?2)
     Route: 065

REACTIONS (2)
  - Device defective [Unknown]
  - Incorrect dose administered [Unknown]

NARRATIVE: CASE EVENT DATE: 20230426
